FAERS Safety Report 12924143 (Version 2)
Quarter: 2016Q4

REPORT INFORMATION
  Report Type: Spontaneous
  Country: DK (occurrence: DK)
  Receive Date: 20161108
  Receipt Date: 20161110
  Transmission Date: 20170207
  Serious: Yes (Life-Threatening)
  Sender: FDA-Public Use
  Company Number: DK-JNJFOC-20161104698

PATIENT
  Age: 64 Year
  Sex: Female
  Weight: 69 kg

DRUGS (1)
  1. SERENASE [Suspect]
     Active Substance: HALOPERIDOL
     Indication: PSYCHOTIC DISORDER
     Route: 065
     Dates: start: 20161003, end: 20161029

REACTIONS (9)
  - Myalgia [Recovering/Resolving]
  - Neuroleptic malignant syndrome [Recovering/Resolving]
  - Torticollis [Recovering/Resolving]
  - Muscle spasms [Recovering/Resolving]
  - Mental status changes [Recovering/Resolving]
  - Muscle rigidity [Recovering/Resolving]
  - Arthralgia [Recovering/Resolving]
  - Pyrexia [Recovering/Resolving]
  - Decreased appetite [Recovered/Resolved]

NARRATIVE: CASE EVENT DATE: 201610
